FAERS Safety Report 20792873 (Version 12)
Quarter: 2022Q4

REPORT INFORMATION
  Report Type: Spontaneous
  Country: US (occurrence: US)
  Receive Date: 20220506
  Receipt Date: 20221125
  Transmission Date: 20230113
  Serious: Yes (Life-Threatening, Hospitalization, Other)
  Sender: FDA-Public Use
  Company Number: US-AMGEN-USASP2022075674

PATIENT
  Age: 64 Year
  Sex: Male
  Weight: 77.8 kg

DRUGS (119)
  1. ENBREL [Suspect]
     Active Substance: ETANERCEPT
     Indication: Psoriatic arthropathy
     Dosage: UNK
     Route: 065
     Dates: end: 2013
  2. OTEZLA [Suspect]
     Active Substance: APREMILAST
     Indication: Psoriatic arthropathy
     Dosage: 30 MILLIGRAM, BID
     Route: 048
  3. OTEZLA [Suspect]
     Active Substance: APREMILAST
     Dosage: 30 MILLIGRAM, BID
     Route: 048
     Dates: start: 20170605, end: 20181226
  4. OTEZLA [Suspect]
     Active Substance: APREMILAST
     Dosage: 30 MILLIGRAM, BID
     Route: 048
     Dates: start: 20190715
  5. COLCHICINE [Suspect]
     Active Substance: COLCHICINE
     Indication: Product used for unknown indication
     Dosage: UNK
     Route: 065
  6. PREDNISONE [Concomitant]
     Active Substance: PREDNISONE
     Dosage: 10 MILLIGRAM, QD
     Route: 048
     Dates: start: 20220117, end: 20220131
  7. PREDNISONE [Concomitant]
     Active Substance: PREDNISONE
     Dosage: 5 MILLIGRAM, QD
     Route: 048
  8. PREDNISONE [Concomitant]
     Active Substance: PREDNISONE
     Dosage: 7 MILLIGRAM, QD
  9. PREDNISONE [Concomitant]
     Active Substance: PREDNISONE
     Dosage: 20 MILLIGRAM, QD
     Route: 048
  10. PREDNISONE [Concomitant]
     Active Substance: PREDNISONE
     Dosage: 15 MILLIGRAM, QD
     Route: 065
  11. METHOTREXATE [Concomitant]
     Active Substance: METHOTREXATE
     Dosage: 25 MG/ML INJECTION QWK
     Route: 058
  12. METHOTREXATE [Concomitant]
     Active Substance: METHOTREXATE
     Dosage: 25 MILLIGRAM, QD
  13. FOLIC ACID [Concomitant]
     Active Substance: FOLIC ACID
     Dosage: UNK UNK, QD
  14. FOLIC ACID [Concomitant]
     Active Substance: FOLIC ACID
     Dosage: 1 MILLIGRAM, QD
     Route: 048
     Dates: start: 20220117, end: 20220131
  15. ALLOPURINOL [Concomitant]
     Active Substance: ALLOPURINOL
     Indication: Gout
     Dosage: 100 MILLIGRAM, QD
     Route: 048
     Dates: start: 20220117, end: 20220131
  16. ALLOPURINOL [Concomitant]
     Active Substance: ALLOPURINOL
     Dosage: 200 MILLIGRAM, QD
  17. ALLOPURINOL [Concomitant]
     Active Substance: ALLOPURINOL
     Dosage: 100 MILLIGRAM
     Dates: start: 20180227
  18. TYLENOL [Concomitant]
     Active Substance: ACETAMINOPHEN
     Indication: Pain
     Dosage: 500 MILLIGRAM
     Route: 048
     Dates: start: 20130426
  19. TYLENOL [Concomitant]
     Active Substance: ACETAMINOPHEN
     Dosage: 500 MILLIGRAM EVERY SIX MONTH
     Route: 048
  20. ZYLOPRIM [Concomitant]
     Active Substance: ALLOPURINOL
     Dosage: 100 MILLIGRAM, QD
     Route: 048
     Dates: start: 20101030
  21. ZYLOPRIM [Concomitant]
     Active Substance: ALLOPURINOL
     Dosage: 100 MILLIGRAM, QID
     Route: 048
     Dates: end: 20220117
  22. LIORESAL [Concomitant]
     Active Substance: BACLOFEN
     Dosage: 10 MILLIGRAM, QWK
     Route: 048
     Dates: start: 20130528
  23. LIORESAL [Concomitant]
     Active Substance: BACLOFEN
     Dosage: 5 MILLIGRAM, TID
     Route: 048
     Dates: end: 20220116
  24. TUMS [Concomitant]
     Active Substance: CALCIUM CARBONATE
     Dosage: 200 MILLIGRAM, BID
     Dates: start: 20130528
  25. VITAMIN D3 [Concomitant]
     Active Substance: CHOLECALCIFEROL
     Dosage: 400 UNIT, BID
     Route: 048
     Dates: start: 20130528
  26. VITAMIN D3 [Concomitant]
     Active Substance: CHOLECALCIFEROL
     Dosage: 25 MICROGRAM, QD
     Route: 048
  27. VITAMIN D3 [Concomitant]
     Active Substance: CHOLECALCIFEROL
     Dosage: 50 MICROGRAM
     Route: 048
  28. KLONOPIN [Concomitant]
     Active Substance: CLONAZEPAM
     Dosage: 0.5 MILLIGRAM, TID
     Route: 048
     Dates: start: 20130528
  29. PLAVIX [Concomitant]
     Active Substance: CLOPIDOGREL BISULFATE
     Dosage: 75 MILLIGRAM, QD
     Route: 048
     Dates: start: 20130528
  30. PLAVIX [Concomitant]
     Active Substance: CLOPIDOGREL BISULFATE
     Dosage: 75 MILLIGRAM, QD
     Route: 048
     Dates: start: 20180502
  31. PLAVIX [Concomitant]
     Active Substance: CLOPIDOGREL BISULFATE
     Dosage: 75 MILLIGRAM, QD
     Route: 048
     Dates: start: 20220117, end: 20220131
  32. MONODOX [Concomitant]
     Active Substance: DOXYCYCLINE
     Dosage: 50 MILLIGRAM, QD
     Route: 048
  33. FOLVITE [Concomitant]
     Active Substance: FOLIC ACID
     Dosage: 1 MILLIGRAM, QD
     Route: 048
     Dates: start: 20190923, end: 20201201
  34. NEURONTIN [Concomitant]
     Active Substance: GABAPENTIN
     Dosage: 600 MILLIGRAM, QID
     Dates: start: 20160310
  35. SYNTHROID [Concomitant]
     Active Substance: LEVOTHYROXINE SODIUM
     Dosage: 50 MICROGRAM, QD
     Route: 048
  36. NITROSTAT [Concomitant]
     Active Substance: NITROGLYCERIN
     Dosage: 0.4 MILLIGRAM
     Route: 060
     Dates: start: 20150123
  37. NITROSTAT [Concomitant]
     Active Substance: NITROGLYCERIN
     Dosage: 0.4 MILLIGRAM
     Route: 060
     Dates: start: 20220117, end: 20220131
  38. DELTASONE [Concomitant]
     Active Substance: PREDNISONE
     Dosage: 5 MILLIGRAM, QD
     Route: 048
     Dates: start: 20161228, end: 20170607
  39. DELTASONE [Concomitant]
     Active Substance: PREDNISONE
     Dosage: 1 MILLIGRAM, QD
     Route: 048
     Dates: start: 20170117, end: 20171030
  40. DELTASONE [Concomitant]
     Active Substance: PREDNISONE
     Dosage: 10 MILLIGRAM, QD
     Route: 048
     Dates: start: 20170208, end: 20171030
  41. DELTASONE [Concomitant]
     Active Substance: PREDNISONE
     Dosage: 5 MILLIGRAM, QD
     Route: 048
     Dates: start: 20200210, end: 20201211
  42. FLOMAX [Concomitant]
     Active Substance: TAMSULOSIN HYDROCHLORIDE
     Dosage: 0.4 MILLIGRAM, QD
     Route: 048
     Dates: start: 20130528
  43. ZOCOR [Concomitant]
     Active Substance: SIMVASTATIN
     Dosage: 20 MILLIGRAM, QD
     Route: 048
  44. PEPCID [Concomitant]
     Active Substance: FAMOTIDINE
     Dosage: 20 MILLIGRAM, BID
     Route: 048
  45. VOLTAREN [Concomitant]
     Active Substance: DICLOFENAC SODIUM
     Dosage: UNK
  46. DOCUSATE SODIUM [Concomitant]
     Active Substance: DOCUSATE SODIUM
     Dosage: 100 MILLIGRAM
     Route: 048
  47. TOPROL XL [Concomitant]
     Active Substance: METOPROLOL SUCCINATE
     Dosage: 25 MILLIGRAM, QD
     Route: 048
  48. ROXICODONE [Concomitant]
     Active Substance: OXYCODONE HYDROCHLORIDE
     Indication: Pain
     Dosage: 5 MILLIGRAM, AS NECESSARY
     Route: 048
     Dates: start: 2014
  49. TEMOVATE [Concomitant]
     Active Substance: CLOBETASOL PROPIONATE
     Dosage: 0.05 UNK
     Dates: start: 20171030, end: 20181030
  50. ATIVAN [Concomitant]
     Active Substance: LORAZEPAM
     Dosage: 0.5 MILLIGRAM
     Route: 048
     Dates: start: 20180412, end: 20180725
  51. MIRALAX [Concomitant]
     Active Substance: POLYETHYLENE GLYCOL 3350
     Dosage: 17 GRAM, AS NECESSARY
     Route: 048
     Dates: start: 20130701, end: 20180503
  52. BACLOFEN [Concomitant]
     Active Substance: BACLOFEN
     Indication: Musculoskeletal stiffness
     Dosage: 5 MILLIGRAM, TID
  53. BACLOFEN [Concomitant]
     Active Substance: BACLOFEN
     Dosage: 10 MILLIGRAM, TID (HALF TABLET)
  54. BACLOFEN [Concomitant]
     Active Substance: BACLOFEN
     Dosage: 5 MILLIGRAM, BID
     Dates: start: 20220117, end: 20220119
  55. AMOXIL [Concomitant]
     Active Substance: AMOXICILLIN
     Dosage: 500 MILLIGRAM
     Dates: start: 20141203, end: 20150309
  56. ZOFRAN [Concomitant]
     Active Substance: ONDANSETRON HYDROCHLORIDE
     Dosage: 08 MILLIGRAM
     Route: 048
     Dates: start: 20140217, end: 20150309
  57. VALIUM [Concomitant]
     Active Substance: DIAZEPAM
     Dosage: UNK
     Dates: start: 20150309, end: 20150629
  58. METOPROLOL [Concomitant]
     Active Substance: METOPROLOL
     Dosage: 25 MILLIGRAM, QD
  59. ATORVASTATIN [Concomitant]
     Active Substance: ATORVASTATIN
     Dosage: 20 MILLIGRAM, QD
     Route: 048
  60. ATORVASTATIN [Concomitant]
     Active Substance: ATORVASTATIN
     Dosage: 10 MILLIGRAM, QHS
     Route: 048
     Dates: start: 20181113
  61. CHLORHEXIDINE GLUCONATE [Concomitant]
     Active Substance: CHLORHEXIDINE GLUCONATE
     Dosage: UNK
  62. CLONAZEPAM [Concomitant]
     Active Substance: CLONAZEPAM
     Indication: Anxiety
     Dosage: 0.5 MILLIGRAM, TID
     Route: 048
  63. CLONAZEPAM [Concomitant]
     Active Substance: CLONAZEPAM
     Dosage: 0.25 MILLIGRAM, BID
     Route: 048
     Dates: start: 20220117, end: 20220131
  64. CLONAZEPAM [Concomitant]
     Active Substance: CLONAZEPAM
     Dosage: 0.5 MILLIGRAM, TID
     Route: 048
     Dates: start: 20180521
  65. CLOPIDOGREL [Concomitant]
     Active Substance: CLOPIDOGREL BISULFATE
     Dosage: 75 MILLIGRAM, QD
     Route: 048
  66. BETAMETHASONE\CLOTRIMAZOLE [Concomitant]
     Active Substance: BETAMETHASONE\CLOTRIMAZOLE
     Dosage: UNK
     Route: 061
  67. CYANOCOBALAMIN [Concomitant]
     Active Substance: CYANOCOBALAMIN
     Dosage: 1000 MCG/ML
  68. CYANOCOBALAMIN [Concomitant]
     Active Substance: CYANOCOBALAMIN
     Dosage: 1000 MICROGRAM, QD (SOLUTION)
     Dates: start: 20220117, end: 20220131
  69. DEXILANT [Concomitant]
     Active Substance: DEXLANSOPRAZOLE
     Indication: Gastrooesophageal reflux disease
     Dosage: 30 MILLIGRAM, QD
     Route: 048
     Dates: start: 20211223
  70. DEXILANT [Concomitant]
     Active Substance: DEXLANSOPRAZOLE
     Dosage: 30 MILLIGRAM, QD
     Route: 048
     Dates: start: 20220117, end: 20220131
  71. DUKES MOUTHWASH [Concomitant]
     Dosage: 10 MILLILITER, AS NECESSARY (EVERY 4 HOUR)
  72. ECONAZOLE [Concomitant]
     Active Substance: ECONAZOLE
     Dosage: UNK
  73. FAMOTIDINE [Concomitant]
     Active Substance: FAMOTIDINE
     Dosage: 40 MILLIGRAM, QD
     Route: 048
     Dates: start: 20220117, end: 20220119
  74. GABAPENTIN [Concomitant]
     Active Substance: GABAPENTIN
     Dosage: 200 MILLIGRAM, TID
  75. GABAPENTIN [Concomitant]
     Active Substance: GABAPENTIN
     Dosage: 100 MILLIGRAM, TID
     Dates: start: 20220117, end: 20220131
  76. HYDROCORTISONE [Concomitant]
     Active Substance: HYDROCORTISONE
  77. KETOCONAZOLE [Concomitant]
     Active Substance: KETOCONAZOLE
  78. LEVETIRACETAM [Concomitant]
     Active Substance: LEVETIRACETAM
     Dosage: 250 MILLIGRAM, BID
     Route: 048
  79. LEVOTHYROXINE [Concomitant]
     Active Substance: LEVOTHYROXINE
     Indication: Hypothyroidism
     Dosage: 50 MICROGRAM, QD
     Route: 048
  80. M dryl [Concomitant]
     Dosage: 12.5 MG/ 5 ML
     Route: 048
  81. NITROGLYCERIN [Concomitant]
     Active Substance: NITROGLYCERIN
     Indication: Chest pain
     Dosage: 0.4 MILLIGRAM
     Route: 060
  82. NYSTATIN [Concomitant]
     Active Substance: NYSTATIN
     Dosage: 10000 UNIT, QID
     Route: 048
  83. POLYMYXIN B SULFATE AND TRIMETHOPRIM [Concomitant]
     Active Substance: POLYMYXIN B SULFATE\TRIMETHOPRIM SULFATE
     Dosage: 10000 UNIT
  84. TAMSULOSIN [Concomitant]
     Active Substance: TAMSULOSIN
     Dosage: 0.4 MILLIGRAM, QD
     Route: 048
  85. TRIAMCINOLONE ACETONIDE [Concomitant]
     Active Substance: TRIAMCINOLONE ACETONIDE
     Dosage: UNK
  86. VALACYCLOVIR [Concomitant]
     Active Substance: VALACYCLOVIR HYDROCHLORIDE
     Dosage: 500 MILLIGRAM
  87. BACTRIM [Concomitant]
     Active Substance: SULFAMETHOXAZOLE\TRIMETHOPRIM
     Indication: Psoriatic arthropathy
     Dosage: 400-80 MILLIGRAM
     Route: 048
     Dates: start: 20220117, end: 20220117
  88. CHOLECALCIFEROL [Concomitant]
     Active Substance: CHOLECALCIFEROL
     Dosage: 1000 UNIT, QD
     Route: 048
     Dates: start: 20220117, end: 20220131
  89. CHOLECALCIFEROL [Concomitant]
     Active Substance: CHOLECALCIFEROL
     Dosage: 2000 UNIT, QD
     Route: 048
  90. FLUTICASONE PROPIONATE [Concomitant]
     Active Substance: FLUTICASONE PROPIONATE
     Dosage: 50 MICROGRAM, QD (1 SPRAY IN EACH NOSTRIL)
     Dates: start: 20220117, end: 20220131
  91. LORATADINE [Concomitant]
     Active Substance: LORATADINE
     Dosage: 10 MILLIGRAM, QD
     Route: 048
     Dates: start: 20220117
  92. MELATONIN [Concomitant]
     Active Substance: MELATONIN
     Indication: Insomnia
     Dosage: UNK
     Route: 048
     Dates: start: 20220125, end: 20220131
  93. METOPROLOL SUCCINATE [Concomitant]
     Active Substance: METOPROLOL SUCCINATE
     Dosage: 25 MILLIGRAM, QD
     Route: 048
     Dates: start: 20220121, end: 20220131
  94. VALTREX [Concomitant]
     Active Substance: VALACYCLOVIR HYDROCHLORIDE
     Dosage: 500 MILLIGRAM, QD
     Dates: start: 20220117, end: 20220131
  95. GUAIFENESIN [Concomitant]
     Active Substance: GUAIFENESIN
     Dosage: 400 MILLIGRAM (EVERY FOUR HOURS)
     Route: 048
     Dates: start: 20220117, end: 20220117
  96. ACETAMINOPHEN [Concomitant]
     Active Substance: ACETAMINOPHEN
     Dosage: 500 MILLIGRAM EVERY 6 HOURS AS NEEDED
     Route: 048
     Dates: start: 20220117, end: 20220131
  97. OXYCODONE [Concomitant]
     Active Substance: OXYCODONE
     Dosage: EVERY 4 HOURS AS NEEDED
     Route: 048
     Dates: start: 20220117
  98. CALCIUM CARBONATE [Concomitant]
     Active Substance: CALCIUM CARBONATE
     Dosage: 1250 MILLIGRAM, BID
     Route: 048
  99. FENTANYL [Concomitant]
     Active Substance: FENTANYL
     Dosage: 25 MICROGRAM EVERY 3 DAYS
  100. FLONASE [Concomitant]
     Active Substance: FLUTICASONE PROPIONATE
     Dosage: UNK UNK, QD
  101. FLONASE [Concomitant]
     Active Substance: FLUTICASONE PROPIONATE
     Dosage: 50 MICROGRAM
     Route: 045
  102. CASTOR OIL [Concomitant]
     Active Substance: CASTOR OIL
     Dosage: UNK UNK, TID
     Route: 061
  103. ENOXAPARIN SODIUM [Concomitant]
     Active Substance: ENOXAPARIN SODIUM
     Dosage: 40MG PER 0.4ML (EACH NIGHT AT BEDTIME)
     Route: 058
  104. SENNA [Concomitant]
     Active Substance: SENNA LEAF\SENNOSIDES\SENNOSIDES A AND B
     Dosage: 17.2 MILLIGRAM, QD
     Route: 048
  105. BISACODYL [Concomitant]
     Active Substance: BISACODYL
     Dosage: 10 MILLIGRAM, QD (PRN)
     Route: 054
  106. CLONIDINE [Concomitant]
     Active Substance: CLONIDINE
     Dosage: 0.1 MILLIGRAM, Q8H
     Route: 048
  107. DIPHENHYDRAMINE [Concomitant]
     Active Substance: DIPHENHYDRAMINE
     Dosage: 25 MILLIGRAM, Q6H
     Route: 048
  108. LIDOCAINE [Concomitant]
     Active Substance: LIDOCAINE
     Dosage: UNK UNK, AS NECESSARY
     Route: 061
  109. OMEPRAZOLE [Concomitant]
     Active Substance: OMEPRAZOLE
     Dosage: 40 MILLIGRAM, QD
     Route: 048
  110. ONDANSETRON [Concomitant]
     Active Substance: ONDANSETRON
     Dosage: 4 MILLIGRAM
     Route: 048
  111. TRAZODONE HCL [Concomitant]
     Active Substance: TRAZODONE HYDROCHLORIDE
     Dosage: 25 MILLIGRAM, QHS (PRN)
  112. PRAVACHOL [Concomitant]
     Active Substance: PRAVASTATIN SODIUM
     Dosage: 40 MILLIGRAM, QHS
     Route: 048
  113. SENOKOT-S [Concomitant]
     Active Substance: DOCUSATE SODIUM\SENNOSIDES
     Dosage: UNK UNK, QD 50 MG-8.6 MG
     Route: 048
  114. HEPARIN [Concomitant]
     Active Substance: HEPARIN SODIUM
     Dosage: 5000 UNIT, TID
     Route: 058
  115. HEPARIN [Concomitant]
     Active Substance: HEPARIN SODIUM
     Dosage: 100 UNIT PER ML, 5 ML
     Route: 042
  116. LIPITOR [Concomitant]
     Active Substance: ATORVASTATIN CALCIUM
     Indication: Product used for unknown indication
     Dosage: 20 MILLIGRAM
     Dates: start: 20181113, end: 20220103
  117. LOTRISONE [Concomitant]
     Active Substance: BETAMETHASONE DIPROPIONATE\CLOTRIMAZOLE
     Dosage: UNK, BID
     Route: 061
     Dates: start: 20201119, end: 20220103
  118. KAPIDEX [Concomitant]
     Active Substance: DEXLANSOPRAZOLE
     Dosage: 30 MILLIGRAM, QD
     Route: 048
     Dates: start: 20201213, end: 20220620
  119. VIBRAMYCIN [Concomitant]
     Active Substance: DOXYCYCLINE
     Dosage: 50 MILLIGRAM, BID
     Route: 048
     Dates: start: 20190715, end: 20220103

REACTIONS (130)
  - Spinal cord injury [Unknown]
  - Quadriplegia [Unknown]
  - Paralysis [Unknown]
  - Cognitive disorder [Unknown]
  - Tonsil cancer [Unknown]
  - Throat cancer [Unknown]
  - Prostate cancer [Unknown]
  - Anal cancer [Unknown]
  - Oesophageal carcinoma [Unknown]
  - Myelopathy [Unknown]
  - Arteriosclerosis coronary artery [Unknown]
  - Pharyngeal cancer [Unknown]
  - Syringomyelia [Unknown]
  - Gross motor delay [Recovering/Resolving]
  - Polyneuropathy [Unknown]
  - Fall [Unknown]
  - Vomiting [Recovering/Resolving]
  - Haemorrhoids [Recovered/Resolved]
  - Nausea [Recovering/Resolving]
  - Erectile dysfunction [Unknown]
  - Neuropathy peripheral [Unknown]
  - Haemorrhoidal haemorrhage [Unknown]
  - Impaired gastric emptying [Unknown]
  - Hypokalaemia [Recovered/Resolved]
  - Acute kidney injury [Recovered/Resolved]
  - Squamous cell carcinoma [Unknown]
  - Hiatus hernia [Unknown]
  - Chronic gastritis [Unknown]
  - Head and neck cancer [Unknown]
  - Myocardial infarction [Unknown]
  - Immunodeficiency [Unknown]
  - Skin cancer [Unknown]
  - Pancytopenia [Unknown]
  - Sepsis [Unknown]
  - Demyelination [Unknown]
  - Pseudomonal sepsis [Unknown]
  - Bacterial infection [Unknown]
  - Gastrooesophageal reflux disease [Unknown]
  - Pseudomonas infection [Unknown]
  - Myelitis transverse [Unknown]
  - Cellulitis [Unknown]
  - Diarrhoea [Unknown]
  - Psoriatic arthropathy [Unknown]
  - Haemorrhage [Unknown]
  - Major depression [Unknown]
  - Pneumonia [Unknown]
  - Drug hypersensitivity [Unknown]
  - Arteriosclerosis [Unknown]
  - Blood copper decreased [Unknown]
  - Exostosis [Unknown]
  - Limb injury [Unknown]
  - Foot fracture [Unknown]
  - Nervous system disorder [Recovered/Resolved]
  - Spinal osteoarthritis [Unknown]
  - Generalised anxiety disorder [Unknown]
  - Hyperuricaemia [Unknown]
  - Bursitis [Unknown]
  - Gout [Unknown]
  - Dactylitis [Unknown]
  - Constipation [Recovered/Resolved]
  - Hypertensive heart disease [Unknown]
  - Neck pain [Unknown]
  - Gait disturbance [Unknown]
  - Balance disorder [Recovering/Resolving]
  - Abdominal distension [Unknown]
  - Mucosal disorder [Unknown]
  - Muscular weakness [Not Recovered/Not Resolved]
  - Electrolyte imbalance [Unknown]
  - Neuralgia [Unknown]
  - Benign prostatic hyperplasia [Unknown]
  - Muscle spasticity [Unknown]
  - Oral disorder [Unknown]
  - Oedema [Unknown]
  - Hyperlipidaemia [Unknown]
  - Pleural effusion [Unknown]
  - Dysuria [Unknown]
  - Haematuria [Unknown]
  - Oral pain [Recovered/Resolved]
  - Inguinal hernia [Unknown]
  - Large intestine polyp [Not Recovered/Not Resolved]
  - Diverticulum intestinal [Not Recovered/Not Resolved]
  - Dehydration [Not Recovered/Not Resolved]
  - Joint swelling [Not Recovered/Not Resolved]
  - Essential hypertension [Not Recovered/Not Resolved]
  - Blood thyroid stimulating hormone increased [Not Recovered/Not Resolved]
  - Mobility decreased [Unknown]
  - Fungal infection [Not Recovered/Not Resolved]
  - Ear infection [Unknown]
  - Urinary tract infection [Unknown]
  - Gastrointestinal pain [Unknown]
  - Hypotension [Unknown]
  - Neurological symptom [Unknown]
  - Cystitis [Unknown]
  - Colitis [Unknown]
  - Gastroenteritis [Unknown]
  - Thrombosis prophylaxis [Unknown]
  - Asthenia [Unknown]
  - Anaemia [Unknown]
  - Skin laceration [Unknown]
  - Conjunctivitis allergic [Unknown]
  - Stomatitis [Unknown]
  - Chronic sinusitis [Unknown]
  - Odynophagia [Unknown]
  - Spinal operation [Unknown]
  - Dry mouth [Unknown]
  - Hypoaesthesia oral [Unknown]
  - Sinus disorder [Unknown]
  - Ear pain [Unknown]
  - COVID-19 [Unknown]
  - Lithiasis [Unknown]
  - Duodenitis [Unknown]
  - Colorectal adenoma [Unknown]
  - Complication associated with device [Unknown]
  - Dysphonia [Unknown]
  - Purpura [Unknown]
  - Myalgia [Unknown]
  - Pulpitis dental [Unknown]
  - Dysphagia [Unknown]
  - Pain [Unknown]
  - Pharyngitis [Unknown]
  - Rosacea [Unknown]
  - Localised infection [Unknown]
  - Idiopathic guttate hypomelanosis [Unknown]
  - Oropharyngeal pain [Unknown]
  - Erythema [Unknown]
  - Rash [Unknown]
  - Abdominal pain [Unknown]
  - Weight decreased [Unknown]
  - Fatigue [Unknown]
  - Cough [Unknown]

NARRATIVE: CASE EVENT DATE: 20130301
